FAERS Safety Report 18194486 (Version 3)
Quarter: 2020Q4

REPORT INFORMATION
  Report Type: Report from Study
  Country: None (occurrence: DE)
  Receive Date: 20200825
  Receipt Date: 20201020
  Transmission Date: 20210113
  Serious: Yes (Hospitalization)
  Sender: FDA-Public Use
  Company Number: DE-ABBVIE-20P-062-3528008-00

PATIENT
  Age: 28 Year
  Sex: Male

DRUGS (4)
  1. RISANKIZUMAB [Suspect]
     Active Substance: RISANKIZUMAB
     Indication: HIDRADENITIS
     Dosage: WK 0,1,2,4, AND 12
     Route: 058
     Dates: start: 20200128, end: 202004
  2. SKINSAN SCRUB N [Concomitant]
     Indication: ANTIBIOTIC PROPHYLAXIS
     Route: 061
     Dates: start: 20200226
  3. RISANKIZUMAB [Suspect]
     Active Substance: RISANKIZUMAB
     Indication: HIDRADENITIS
     Dosage: WK 20 AND THEN Q8 WEEKS
     Route: 058
     Dates: start: 20200618
  4. PLACEBO [Suspect]
     Active Substance: UNSPECIFIED INGREDIENT
     Indication: HIDRADENITIS
     Dosage: WK 16, 17 AND 18
     Route: 058
     Dates: start: 20200519, end: 20200603

REACTIONS (1)
  - Tonsillitis [Recovered/Resolved]

NARRATIVE: CASE EVENT DATE: 20200811
